FAERS Safety Report 4922464-7 (Version None)
Quarter: 2006Q1

REPORT INFORMATION
  Report Type: 
  Country: None (occurrence: None)
  Receive Date: 20060224
  Receipt Date: 20051020
  Transmission Date: 20060701
  Serious: Yes (Hospitalization)
  Sender: FDA-Public Use
  Company Number: US-MERCK-0510USA08375

PATIENT
  Age: 70 Year
  Sex: Female
  Weight: 80 kg

DRUGS (8)
  1. VIOXX [Suspect]
     Indication: ARTHRITIS
     Route: 048
     Dates: start: 19990902, end: 20040216
  2. PRAVACHOL [Concomitant]
     Route: 065
  3. PAXIL [Concomitant]
     Route: 065
  4. GLIPIZIDE [Concomitant]
     Route: 065
  5. ASPIRIN [Concomitant]
     Route: 065
  6. PROTONIX [Concomitant]
     Route: 065
  7. CRESTOR [Concomitant]
     Route: 065
  8. ALTACE [Concomitant]
     Route: 065

REACTIONS (3)
  - MALIGNANT HYPERTENSION [None]
  - TRANSIENT ISCHAEMIC ATTACK [None]
  - TREATMENT NONCOMPLIANCE [None]
